FAERS Safety Report 14170227 (Version 1)
Quarter: 2017Q4

REPORT INFORMATION
  Report Type: Spontaneous
  Country: GB (occurrence: GB)
  Receive Date: 20171108
  Receipt Date: 20171108
  Transmission Date: 20180321
  Serious: Yes (Life-Threatening)
  Sender: FDA-Public Use
  Company Number: GB-PFIZER INC-2017477039

PATIENT
  Age: 64 Year
  Sex: Female
  Weight: 76.2 kg

DRUGS (15)
  1. CARBOCISTEINE [Concomitant]
     Active Substance: CARBOCYSTEINE
  2. MIRTAZAPINE. [Concomitant]
     Active Substance: MIRTAZAPINE
  3. ADIZEM [Concomitant]
     Active Substance: DILTIAZEM HYDROCHLORIDE
  4. ASPIRIN /00002701/ [Concomitant]
     Active Substance: ASPIRIN
  5. PARACETAMOL [Concomitant]
     Active Substance: ACETAMINOPHEN
  6. DULOXETINE HYDROCHLORIDE. [Concomitant]
     Active Substance: DULOXETINE HYDROCHLORIDE
  7. UNIPHYLLIN CONTINUS [Concomitant]
     Active Substance: THEOPHYLLINE ANHYDROUS
  8. PREGABALIN. [Suspect]
     Active Substance: PREGABALIN
     Indication: PAIN
     Dosage: 25 MG, UNK
     Route: 048
     Dates: start: 20171017, end: 20171020
  9. ISOSORBIDE. [Concomitant]
     Active Substance: ISOSORBIDE
  10. TRIMETHOPRIM. [Concomitant]
     Active Substance: TRIMETHOPRIM
  11. SIMVASTATIN. [Concomitant]
     Active Substance: SIMVASTATIN
  12. MONTELUKAST SODIUM. [Concomitant]
     Active Substance: MONTELUKAST SODIUM
  13. SALBUTAMOL [Concomitant]
     Active Substance: ALBUTEROL
  14. FOSTAIR [Concomitant]
     Active Substance: BECLOMETHASONE\FORMOTEROL
  15. TIOTROPIUM BROMIDE [Concomitant]
     Active Substance: TIOTROPIUM BROMIDE
     Dosage: UNK

REACTIONS (3)
  - Dyspnoea [Recovered/Resolved]
  - Asthma [Recovered/Resolved]
  - Condition aggravated [Recovered/Resolved]

NARRATIVE: CASE EVENT DATE: 20171018
